FAERS Safety Report 20531565 (Version 1)
Quarter: 2022Q1

REPORT INFORMATION
  Report Type: Spontaneous
  Country: US (occurrence: US)
  Receive Date: 20220301
  Receipt Date: 20220301
  Transmission Date: 20220423
  Serious: No
  Sender: FDA-Public Use
  Company Number: US-SA-SAC20220223001460

PATIENT
  Sex: Female

DRUGS (8)
  1. AUBAGIO [Suspect]
     Active Substance: TERIFLUNOMIDE
     Indication: Multiple sclerosis
     Route: 048
     Dates: start: 201605
  2. DUPIXENT [Concomitant]
     Active Substance: DUPILUMAB
  3. TOPIRAMATE [Concomitant]
     Active Substance: TOPIRAMATE
  4. SIMVASTATIN [Concomitant]
     Active Substance: SIMVASTATIN
  5. HYDROXYZINE HYDROCHLORIDE [Concomitant]
     Active Substance: HYDROXYZINE HYDROCHLORIDE
  6. LISINOPRIL [Concomitant]
     Active Substance: LISINOPRIL
  7. SERTRALINE HYDROCHLORIDE [Concomitant]
     Active Substance: SERTRALINE HYDROCHLORIDE
  8. MESALAMINE [Concomitant]
     Active Substance: MESALAMINE

REACTIONS (5)
  - Nasal congestion [Unknown]
  - Cough [Unknown]
  - COVID-19 [Unknown]
  - Pain [Unknown]
  - Pruritus [Unknown]
